FAERS Safety Report 4950301-3 (Version None)
Quarter: 2006Q1

REPORT INFORMATION
  Report Type: 
  Country: None (occurrence: None)
  Receive Date: 20060315
  Receipt Date: 20060307
  Transmission Date: 20060701
  Serious: Yes (Hospitalization)
  Sender: FDA-Public Use
  Company Number: 2006US000285

PATIENT
  Age: 30 Year
  Sex: Female

DRUGS (10)
  1. PROGRAF (TACROLIUMUS) CAPSULES [Suspect]
     Indication: PROPHYLAXIS AGAINST TRANSPLANT REJECTION
     Dosage: SEE IMAGE
     Route: 048
     Dates: start: 20050610
  2. PROGRAF (TACROLIUMUS) CAPSULES [Suspect]
     Indication: PROPHYLAXIS AGAINST TRANSPLANT REJECTION
     Dosage: SEE IMAGE
     Route: 048
     Dates: start: 20060114
  3. MYCOPHENOLATE MOFETIL [Suspect]
     Indication: PROPHYLAXIS AGAINST TRANSPLANT REJECTION
     Dosage: 1000 MG, BID, ORAL
     Route: 048
     Dates: start: 20050610
  4. CORTICOSTEROIDS() [Suspect]
     Indication: PROPHYLAXIS AGAINST TRANSPLANT REJECTION
  5. BACTRIM [Concomitant]
  6. FERROUS SULFATE TAB [Concomitant]
  7. LIPITOR [Concomitant]
  8. PEPCID [Concomitant]
  9. VALCYTE [Concomitant]
  10. ZITHROMAX [Concomitant]

REACTIONS (1)
  - ENCEPHALITIS [None]
